FAERS Safety Report 4532254-5 (Version None)
Quarter: 2004Q4

REPORT INFORMATION
  Report Type: 
  Country: None (occurrence: None)
  Receive Date: 20041206
  Receipt Date: 20040917
  Transmission Date: 20050328
  Serious: No
  Sender: FDA-Public Use
  Company Number: USA040978614

PATIENT
  Sex: Female

DRUGS (4)
  1. CYMBALTA [Suspect]
     Dosage: 30 MG IN THE MORNING
     Dates: start: 20040917, end: 20040917
  2. UNITHROID (LEVOTHYROXINE SODIUM) [Concomitant]
  3. LIOTHYRONINE SODIUM [Concomitant]
  4. CIPRO [Concomitant]

REACTIONS (1)
  - VOMITING [None]
